FAERS Safety Report 7192031-6 (Version None)
Quarter: 2010Q4

REPORT INFORMATION
  Report Type: 
  Country: None (occurrence: None)
  Receive Date: 20101223
  Receipt Date: 20101213
  Transmission Date: 20110411
  Serious: Yes (Other)
  Sender: FDA-Public Use
  Company Number: US-BAYER-2010-004560

PATIENT
  Sex: Female

DRUGS (3)
  1. YAZ [Suspect]
     Dosage: UNK
     Dates: start: 20071201, end: 20090101
  2. YASMIN [Suspect]
     Dosage: UNK
     Dates: start: 20071201, end: 20090101
  3. OCELLA [Suspect]
     Dosage: UNK
     Dates: start: 20071201, end: 20090101

REACTIONS (1)
  - DEEP VEIN THROMBOSIS [None]
